FAERS Safety Report 12465739 (Version 3)
Quarter: 2016Q3

REPORT INFORMATION
  Report Type: Spontaneous
  Country: US (occurrence: US)
  Receive Date: 20160614
  Receipt Date: 20160801
  Transmission Date: 20161109
  Serious: Yes (Other)
  Sender: FDA-Public Use
  Company Number: US-ASTELLAS-2016US022405

PATIENT
  Age: 62 Year
  Sex: Female

DRUGS (2)
  1. MYRBETRIQ [Suspect]
     Active Substance: MIRABEGRON
     Indication: GENITOURINARY SYMPTOM
     Route: 048
     Dates: start: 201412
  2. MYRBETRIQ [Suspect]
     Active Substance: MIRABEGRON
     Indication: MULTIPLE SCLEROSIS

REACTIONS (3)
  - Off label use [Unknown]
  - Fall [Recovered/Resolved]
  - Clavicle fracture [Not Recovered/Not Resolved]

NARRATIVE: CASE EVENT DATE: 201605
